FAERS Safety Report 8827875 (Version 3)
Quarter: 2012Q4

REPORT INFORMATION
  Report Type: 
  Country: US (occurrence: US)
  Receive Date: 20121008
  Receipt Date: 20121204
  Transmission Date: 20130627
  Serious: Yes (Other)
  Sender: FDA-Public Use
  Company Number: US-PFIZER INC-2012246074

PATIENT
  Age: 50 Year
  Sex: Female
  Weight: 86.17 kg

DRUGS (19)
  1. CHANTIX [Suspect]
     Indication: SMOKING CESSATION THERAPY
     Dosage: quarter of a tablet, 2x/day
     Route: 048
     Dates: start: 20120312, end: 20120325
  2. CHANTIX [Suspect]
     Dosage: 0.5 mg, 2x/day
     Route: 048
     Dates: start: 20120326, end: 20120401
  3. CHANTIX [Suspect]
     Dosage: 1 mg, 2x/day
     Route: 048
     Dates: start: 20120402, end: 201206
  4. CHANTIX [Suspect]
     Dosage: 0.5 mg, 2x/day
     Route: 048
     Dates: start: 201207, end: 2012
  5. CHANTIX [Suspect]
     Dosage: 1 mg, 2x/day
     Route: 048
     Dates: start: 2012, end: 20120906
  6. PROZAC [Suspect]
     Indication: DEPRESSION
     Dosage: 20 mg, 1x/day
     Route: 048
     Dates: start: 20120730, end: 20120906
  7. LISINOPRIL [Concomitant]
     Indication: BLOOD PRESSURE HIGH
     Dosage: 5 mg, 1x/day
     Route: 048
     Dates: start: 20110413
  8. ESTRACE [Concomitant]
     Indication: HORMONE REPLACEMENT THERAPY
     Dosage: 1 mg, 1x/day
     Route: 048
     Dates: start: 20120412
  9. NORCO [Concomitant]
     Indication: PAIN
     Dosage: 0.5 to 1 tablet of 10/325mg every 4 to 6 hours as needed
     Route: 048
     Dates: start: 20110623
  10. NORCO [Concomitant]
     Indication: BACK INJURY
  11. SULFAMETHOXAZOLE W/TRIMETHOPRIM [Concomitant]
     Dosage: 800 mg/ 160 mg, every morning and evening for 7 days
     Route: 048
     Dates: start: 20120730, end: 20120806
  12. CYCLOBENZAPRINE [Concomitant]
     Indication: MUSCLE SPASMS
     Dosage: 10 mg, twice daily as needed
     Route: 048
     Dates: start: 20120312
  13. IBUPROFEN [Concomitant]
     Dosage: 200 mg, 4 times daily as needed
     Route: 048
  14. OMEGA 3/VITAMIN E [Concomitant]
     Dosage: UNK
     Route: 048
  15. PHENAZOPYRIDINE [Concomitant]
     Indication: PAINFUL URINATION
     Dosage: 200 mg, three time daily as needed
     Route: 048
     Dates: start: 20110825, end: 20110922
  16. NITROFURANTOIN [Concomitant]
     Dosage: 100 mg, 2x/day
     Route: 048
     Dates: start: 20110825, end: 20120922
  17. METHOCARBAMOL [Concomitant]
     Dosage: 750 mg, Before bedtime as needed
     Route: 048
     Dates: start: 20110217, end: 20120612
  18. PSEUDOEPHEDRINE [Concomitant]
     Indication: CONGESTION NASAL
     Dosage: 60 mg, every 4 to 6 hours as needed
     Route: 048
     Dates: start: 20110623
  19. HYDROXIZINE [Concomitant]
     Indication: ANXIETY DISORDER
     Dosage: 25mg, every 8 hours
     Route: 048
     Dates: start: 20110218, end: 20120612

REACTIONS (6)
  - Depression [Recovered/Resolved]
  - Affective disorder [Recovered/Resolved]
  - Stress [Unknown]
  - Abdominal discomfort [Recovered/Resolved]
  - Diarrhoea [Recovered/Resolved]
  - Drug ineffective [Unknown]
